FAERS Safety Report 23298637 (Version 1)
Quarter: 2023Q4

REPORT INFORMATION
  Report Type: Report from Study
  Country: MX (occurrence: MX)
  Receive Date: 20231214
  Receipt Date: 20231214
  Transmission Date: 20240110
  Serious: Yes (Other)
  Sender: FDA-Public Use
  Company Number: MX-ABBVIE-5536003

PATIENT
  Sex: Female
  Weight: 59 kg

DRUGS (2)
  1. VENCLEXTA [Suspect]
     Active Substance: VENETOCLAX
     Indication: Chronic lymphocytic leukaemia
     Dosage: 400 MILLIGRAM, FORM STRENGTH: 100 MILLIGRAM, FREQUENCY TEXT: DAILY?LAST ADMIN DATE: 2023
     Route: 048
     Dates: start: 20230901
  2. DICLOXACILLIN [Concomitant]
     Active Substance: DICLOXACILLIN
     Indication: Neoplasm malignant
     Dosage: 500 MG?FREQUENCY TEXT: EVERY 6 HOURS
     Dates: start: 2023

REACTIONS (8)
  - Neoplasm malignant [Not Recovered/Not Resolved]
  - Diarrhoea [Recovered/Resolved]
  - Immunodeficiency [Unknown]
  - Hunger [Unknown]
  - Gastritis [Unknown]
  - Skin ulcer [Not Recovered/Not Resolved]
  - Infected skin ulcer [Unknown]
  - Ulcer haemorrhage [Not Recovered/Not Resolved]

NARRATIVE: CASE EVENT DATE: 20230101
